FAERS Safety Report 9288770 (Version 1)
Quarter: 2013Q2

REPORT INFORMATION
  Report Type: Spontaneous
  Country: US (occurrence: US)
  Receive Date: 20130514
  Receipt Date: 20130514
  Transmission Date: 20140414
  Serious: No
  Sender: FDA-Public Use
  Company Number: US-OPTIMER PHARMACEUTICALS, INC.-20110063

PATIENT
  Sex: 0

DRUGS (3)
  1. DIFICID [Suspect]
     Indication: CLOSTRIDIUM DIFFICILE COLITIS
     Dosage: 200 MG, BID
     Route: 048
     Dates: start: 20111124, end: 20111204
  2. LORAZEPAM [Concomitant]
     Indication: ANXIETY
     Dosage: 2 MG, QD
     Route: 048
  3. XANAX [Concomitant]
     Indication: ANXIETY
     Dosage: UNK, BID
     Route: 048

REACTIONS (3)
  - Aphonia [Not Recovered/Not Resolved]
  - Feeling abnormal [Recovering/Resolving]
  - Insomnia [Recovering/Resolving]
